FAERS Safety Report 9785482 (Version 1)
Quarter: 2013Q4

REPORT INFORMATION
  Report Type: Spontaneous
  Country: US (occurrence: None)
  Receive Date: 20131226
  Receipt Date: 20131226
  Transmission Date: 20140711
  Serious: No
  Sender: FDA-Public Use
  Company Number: None

PATIENT
  Age: 56 Year
  Sex: Female
  Weight: 83.92 kg

DRUGS (1)
  1. SINGULAR [Suspect]
     Indication: ASTHMA
     Dosage: 1 PILL ONCE DAILY TAKEN BY MOUTH
     Dates: start: 20120111, end: 20120114

REACTIONS (2)
  - Nightmare [None]
  - Memory impairment [None]
